FAERS Safety Report 18628515 (Version 1)
Quarter: 2020Q4

REPORT INFORMATION
  Report Type: Spontaneous
  Country: FR (occurrence: FR)
  Receive Date: 20201217
  Receipt Date: 20201217
  Transmission Date: 20210114
  Serious: Yes (Other)
  Sender: FDA-Public Use
  Company Number: FR-009507513-2012FRA007014

PATIENT

DRUGS (1)
  1. ALENDRONATE SODIUM. [Suspect]
     Active Substance: ALENDRONATE SODIUM
     Indication: PRODUCT USED FOR UNKNOWN INDICATION
     Dosage: 1 TABLET /DAY
     Route: 048

REACTIONS (4)
  - Product administration error [Not Recovered/Not Resolved]
  - Mouth ulceration [Recovered/Resolved]
  - Pharyngeal ulceration [Recovered/Resolved]
  - Tongue ulceration [Recovered/Resolved]
